FAERS Safety Report 5504318-0 (Version None)
Quarter: 2007Q4

REPORT INFORMATION
  Report Type: 
  Country: None (occurrence: None)
  Receive Date: 20071101
  Receipt Date: 20071029
  Transmission Date: 20080405
  Serious: Yes (Death, Other)
  Sender: FDA-Public Use
  Company Number: US-SHR-US-2007-013623

PATIENT
  Age: 56 Year
  Sex: Male

DRUGS (1)
  1. MAGNEVIST [Suspect]
     Dosage: 40 ML, 1 DOSE
     Route: 042
     Dates: start: 20070416, end: 20070416

REACTIONS (5)
  - ANAPHYLACTIC REACTION [None]
  - CARDIAC ARREST [None]
  - LOSS OF CONSCIOUSNESS [None]
  - NASAL CONGESTION [None]
  - RESPIRATORY DISTRESS [None]
